FAERS Safety Report 7466470-X (Version None)
Quarter: 2011Q2

REPORT INFORMATION
  Report Type: 
  Country: None (occurrence: None)
  Receive Date: 20110509
  Receipt Date: 20100823
  Transmission Date: 20111010
  Serious: No
  Sender: FDA-Public Use
  Company Number: US-ALEXION-A201001052

PATIENT
  Sex: Female
  Weight: 106.94 kg

DRUGS (11)
  1. OXYCODONE [Concomitant]
     Indication: PAIN
     Dosage: 5 MG, QD
     Route: 048
  2. SOLIRIS [Suspect]
     Dosage: 900 MG, Q2W
     Route: 042
  3. EXJADE [Concomitant]
     Dosage: 500 MG, QID
     Route: 048
  4. AMBIEN [Concomitant]
     Dosage: 10 MG, QD
     Route: 048
  5. TYLENOL (CAPLET) [Concomitant]
     Indication: PAIN
     Dosage: 1000 MG, QID, PRN
     Route: 048
  6. IBUPROFEN [Concomitant]
     Dosage: 200 MG, TID, PRN
     Route: 048
  7. OXYCODONE [Concomitant]
     Dosage: 5 MG, QID, PRN
  8. SOLIRIS [Suspect]
     Indication: PAROXYSMAL NOCTURNAL HAEMOGLOBINURIA
     Dosage: UNK
     Route: 042
     Dates: start: 20070501
  9. PANTOPRAZOLE [Concomitant]
     Dosage: 40 MG, QD
  10. ARIXTRA [Suspect]
     Dosage: 5 MG, QD
     Route: 058
  11. OXYCONTIN [Concomitant]
     Dosage: 40 MG, BID
     Route: 048

REACTIONS (9)
  - CHEST PAIN [None]
  - HEPATIC FAILURE [None]
  - AORTIC VALVE INCOMPETENCE [None]
  - GINGIVAL BLEEDING [None]
  - DYSPNOEA [None]
  - HYPERBILIRUBINAEMIA [None]
  - BLOOD IRON INCREASED [None]
  - HAEMOGLOBIN DECREASED [None]
  - ANXIETY [None]
